FAERS Safety Report 21640120 (Version 1)
Quarter: 2022Q4

REPORT INFORMATION
  Report Type: Report from Study
  Country: CL (occurrence: CL)
  Receive Date: 20221124
  Receipt Date: 20221124
  Transmission Date: 20230113
  Serious: Yes (Hospitalization, Other)
  Sender: FDA-Public Use
  Company Number: CL-VER-202200005

PATIENT
  Age: 74 Year
  Sex: Male

DRUGS (2)
  1. TRIPTORELIN PAMOATE [Suspect]
     Active Substance: TRIPTORELIN PAMOATE
     Indication: Product used for unknown indication
     Route: 065
  2. XTANDI [Suspect]
     Active Substance: ENZALUTAMIDE
     Indication: Prostate cancer metastatic
     Dosage: ? 120 CAP ? 30 FND
     Route: 048

REACTIONS (6)
  - Ear disorder [Unknown]
  - Prostatectomy [Unknown]
  - Intentional underdose [Unknown]
  - Bone neoplasm [Unknown]
  - Product supply issue [Not Recovered/Not Resolved]
  - Treatment noncompliance [Unknown]
